FAERS Safety Report 24048951 (Version 2)
Quarter: 2024Q3

REPORT INFORMATION
  Report Type: Report from Study
  Country: CN (occurrence: CN)
  Receive Date: 20240704
  Receipt Date: 20240808
  Transmission Date: 20241017
  Serious: Yes (Other)
  Sender: ROCHE
  Company Number: CN-ROCHE-10000012322

PATIENT

DRUGS (4)
  1. TRASTUZUMAB [Suspect]
     Active Substance: TRASTUZUMAB
     Indication: Gastric cancer
     Route: 065
  2. GIMERACIL\OTERACIL\TEGAFUR [Suspect]
     Active Substance: GIMERACIL\OTERACIL POTASSIUM\TEGAFUR
     Indication: Gastric cancer
     Dosage: 3 CYCLES
     Route: 065
  3. OXALIPLATIN [Suspect]
     Active Substance: OXALIPLATIN
     Indication: Gastric cancer
     Dosage: 3 CYCLES
     Route: 065
  4. RIVOCERANIB [Suspect]
     Active Substance: RIVOCERANIB
     Indication: Gastric cancer
     Route: 065

REACTIONS (4)
  - Gastrointestinal anastomotic leak [Recovering/Resolving]
  - Abdominal infection [Recovering/Resolving]
  - Impaired gastric emptying [Recovering/Resolving]
  - Pleural effusion [Recovering/Resolving]
